FAERS Safety Report 22358220 (Version 1)
Quarter: 2023Q2

REPORT INFORMATION
  Report Type: Spontaneous
  Country: US (occurrence: US)
  Receive Date: 20230524
  Receipt Date: 20230524
  Transmission Date: 20230722
  Serious: Yes (Death)
  Sender: FDA-Public Use
  Company Number: US-SPECGX-T202301191

PATIENT
  Age: 37 Year
  Sex: Male

DRUGS (1)
  1. FENTANYL CITRATE [Suspect]
     Active Substance: FENTANYL CITRATE
     Indication: Product used for unknown indication
     Dosage: UNK
     Route: 065

REACTIONS (12)
  - Myocardial ischaemia [Fatal]
  - Hepatotoxicity [Fatal]
  - Myocardial injury [Fatal]
  - Pneumonitis aspiration [Fatal]
  - Acute kidney injury [Fatal]
  - Bradypnoea [Fatal]
  - Hypertension [Fatal]
  - Coma [Fatal]
  - Depressed level of consciousness [Fatal]
  - Hypotension [Fatal]
  - Metabolic acidosis [Fatal]
  - Toxicity to various agents [Fatal]
